FAERS Safety Report 7058146-8 (Version None)
Quarter: 2010Q4

REPORT INFORMATION
  Report Type: 
  Country: None (occurrence: None)
  Receive Date: 20101022
  Receipt Date: 20101021
  Transmission Date: 20110411
  Serious: Yes (Other)
  Sender: FDA-Public Use
  Company Number: US-BRISTOL-MYERS SQUIBB COMPANY-15343965

PATIENT
  Age: 20 Year

DRUGS (1)
  1. VM-26 [Suspect]
     Indication: MEDULLOBLASTOMA

REACTIONS (1)
  - RESPIRATORY DISTRESS [None]
